FAERS Safety Report 21994706 (Version 1)
Quarter: 2023Q1

REPORT INFORMATION
  Report Type: Spontaneous
  Country: CA (occurrence: CA)
  Receive Date: 20230215
  Receipt Date: 20230215
  Transmission Date: 20230417
  Serious: Yes (Other)
  Sender: FDA-Public Use
  Company Number: CA-PFIZER INC-202300066653

PATIENT
  Age: 77 Year
  Sex: Female

DRUGS (1)
  1. BEVACIZUMAB [Suspect]
     Active Substance: BEVACIZUMAB
     Route: 050

REACTIONS (5)
  - Dry eye [Unknown]
  - Eye injury [Unknown]
  - Ocular hyperaemia [Unknown]
  - Off label use [Unknown]
  - Pain [Unknown]
